APPROVED DRUG PRODUCT: EDROPHONIUM CHLORIDE
Active Ingredient: EDROPHONIUM CHLORIDE
Strength: 10MG/ML
Dosage Form/Route: INJECTABLE;INJECTION
Application: A040044 | Product #001
Applicant: WATSON LABORATORIES INC
Approved: Mar 20, 1996 | RLD: No | RS: No | Type: DISCN